FAERS Safety Report 16647301 (Version 3)
Quarter: 2019Q3

REPORT INFORMATION
  Report Type: Spontaneous
  Country: US (occurrence: US)
  Receive Date: 20190730
  Receipt Date: 20190927
  Transmission Date: 20191004
  Serious: No
  Sender: FDA-Public Use
  Company Number: US-PFIZER INC-2019320143

PATIENT
  Age: 57 Year
  Sex: Female
  Weight: 89 kg

DRUGS (5)
  1. LYRICA [Concomitant]
     Active Substance: PREGABALIN
     Dosage: 150 MG, 3X/DAY
     Dates: start: 2001
  2. DAPSONE. [Concomitant]
     Active Substance: DAPSONE
     Indication: LEPROSY
     Dosage: 25 MG, 2X/DAY
     Dates: start: 2000
  3. ATORVASTATIN CALCIUM. [Suspect]
     Active Substance: ATORVASTATIN CALCIUM
     Indication: BLOOD CHOLESTEROL INCREASED
     Dosage: 40 MG, 1X/DAY
  4. VITAMIN D3 [Concomitant]
     Active Substance: CHOLECALCIFEROL
     Dosage: 125 UG, 1X/DAY
     Dates: start: 201908
  5. CYMBALTA [Concomitant]
     Active Substance: DULOXETINE HYDROCHLORIDE
     Dosage: 40 MG, 2X/DAY
     Dates: start: 1998

REACTIONS (1)
  - Drug intolerance [Not Recovered/Not Resolved]

NARRATIVE: CASE EVENT DATE: 2011
